FAERS Safety Report 8022962 (Version 1)
Quarter: 2020Q3

REPORT INFORMATION
  Report Type: Spontaneous
  Country: DK (occurrence: None)
  Receive Date: 20110621
  Receipt Date: 20110621
  Transmission Date: 20201105
  Serious: Yes (Hospitalization)
  Sender: FDA-Public Use
  Company Number: 2011MA007079

PATIENT
  Age: 74 Year
  Sex: Female

DRUGS (9)
  1. SODIUM CHLORIDE. [Concomitant]
     Active Substance: SODIUM CHLORIDE
  2. ETORICOXIB. [Suspect]
     Active Substance: ETORICOXIB
     Indication: OSTEOARTHRITIS
     Dosage: 60 MG; QD; PO
     Route: 048
     Dates: end: 20110514
  3. PARACETAMOL [Concomitant]
     Active Substance: ACETAMINOPHEN
  4. ALENDRONIC ACID [Concomitant]
     Active Substance: ALENDRONIC ACID
  5. CALCICHEW D3 [Concomitant]
  6. FORTISIP [Concomitant]
  7. IBUPROFEN. [Suspect]
     Active Substance: IBUPROFEN
     Dosage: 400 MG; TID; PO
     Route: 048
  8. ENOXAPARIN SODIUM. [Suspect]
     Active Substance: ENOXAPARIN SODIUM
     Indication: THROMBOSIS PROPHYLAXIS
     Dosage: 40 MG; QD; SC
     Route: 058
     Dates: start: 20110502, end: 20110514
  9. LEVOTHYROXINE. [Concomitant]
     Active Substance: LEVOTHYROXINE

REACTIONS (1)
  - Duodenal ulcer [None]

NARRATIVE: CASE EVENT DATE: 20110514
